FAERS Safety Report 9473561 (Version 1)
Quarter: 2013Q3

REPORT INFORMATION
  Report Type: Spontaneous
  Country: US (occurrence: US)
  Receive Date: 20130823
  Receipt Date: 20130823
  Transmission Date: 20140515
  Serious: Yes (Hospitalization)
  Sender: FDA-Public Use
  Company Number: US-B.I. PHARMACEUTICALS,INC./RIDGEFIELD-2013-BI-25200BP

PATIENT
  Age: 84 Year
  Sex: Female
  Weight: 54 kg

DRUGS (3)
  1. DULCOLAX TABLETS [Suspect]
     Indication: CONSTIPATION
     Route: 048
     Dates: start: 20130809
  2. FAMOTIDIN [Concomitant]
     Indication: GASTROOESOPHAGEAL REFLUX DISEASE
     Dosage: 40 MG
     Route: 048
     Dates: start: 2008
  3. LEVOTHYROXINE [Concomitant]
     Indication: HYPOTHYROIDISM
     Dosage: 75 MG
     Route: 048
     Dates: start: 2006

REACTIONS (4)
  - Colitis [Not Recovered/Not Resolved]
  - Abdominal pain [Recovered/Resolved]
  - Haematochezia [Recovered/Resolved]
  - Heart rate increased [Recovered/Resolved]
